FAERS Safety Report 7403799-5 (Version None)
Quarter: 2011Q2

REPORT INFORMATION
  Report Type: 
  Country: None (occurrence: None)
  Receive Date: 20110408
  Receipt Date: 20110406
  Transmission Date: 20111010
  Serious: Yes (Life-Threatening, Hospitalization, Other)
  Sender: FDA-Public Use
  Company Number: PHHY2011PL20111

PATIENT
  Age: 51 Year
  Sex: Male
  Weight: 110 kg

DRUGS (4)
  1. OROFAR [Concomitant]
     Indication: PHARYNGITIS BACTERIAL
     Dosage: 1 DF, 5QD
     Route: 048
     Dates: start: 20101228
  2. CEFUROXIME AXETIL [Suspect]
     Indication: PHARYNGITIS BACTERIAL
     Dosage: 1000 MG, BID
     Route: 048
     Dates: start: 20101228, end: 20110108
  3. SINUPRET [Concomitant]
     Indication: PHARYNGITIS BACTERIAL
     Dosage: 1 DF, 6QD
     Route: 048
     Dates: start: 20101228, end: 20110108
  4. NOLPAZA (PANTOPRAZOLE) [Concomitant]
     Indication: PHARYNGITIS BACTERIAL
     Dosage: 20 MG, UNK
     Route: 048
     Dates: start: 20101228, end: 20110108

REACTIONS (3)
  - ANAPHYLACTIC SHOCK [None]
  - FACIAL PARESIS [None]
  - NEUROPATHY PERIPHERAL [None]
